FAERS Safety Report 8588718 (Version 4)
Quarter: 2013Q1

REPORT INFORMATION
  Report Type: Spontaneous
  Country: FR (occurrence: FR)
  Receive Date: 20120509
  Receipt Date: 20130301
  Transmission Date: 20140127
  Serious: Yes (Disabling, Other)
  Sender: FDA-Public Use
  Company Number: FR-009507513-1205FRA00026

PATIENT
  Age: 51 Year
  Sex: Female
  Weight: 78 kg

DRUGS (13)
  1. XELEVIA [Suspect]
     Indication: DIABETES MELLITUS
     Dosage: UNK
     Route: 048
     Dates: start: 200904, end: 2011
  2. NOVO-NORM [Suspect]
     Indication: DIABETES MELLITUS
     Dosage: UNK
     Dates: start: 201105, end: 2011
  3. GLUCOPHAGE [Suspect]
     Indication: DIABETES MELLITUS
     Dates: end: 2011
  4. GLUCOPHAGE [Suspect]
     Dosage: UNK
  5. EUCREAS [Suspect]
     Indication: DIABETES MELLITUS
     Dosage: UNK
     Dates: end: 201105
  6. ABILIFY [Suspect]
     Indication: BIPOLAR DISORDER
     Dates: start: 1995, end: 2011
  7. RISPERIDONE [Suspect]
     Indication: BIPOLAR DISORDER
     Dates: end: 2011
  8. DEPAKOTE [Suspect]
     Indication: BIPOLAR DISORDER
     Dosage: 500 MG, UNK
     Dates: end: 2006
  9. DIAMICRON [Suspect]
     Indication: DIABETES MELLITUS
     Dosage: 60 MG, UNK
     Dates: end: 2011
  10. MEDIATOR [Suspect]
     Indication: DIABETES MELLITUS
     Dosage: UNK
     Dates: start: 2006, end: 2006
  11. INSULIN [Suspect]
     Dosage: UNK
     Dates: start: 201105
  12. GLUCOPHAGE [Suspect]
     Indication: DIABETES MELLITUS
     Route: 048
  13. METFORMIN HYDROCHLORIDE [Suspect]

REACTIONS (6)
  - Hepatic cirrhosis [Unknown]
  - Portal hypertension [Not Recovered/Not Resolved]
  - Anaemia [Unknown]
  - Hypothermia [Unknown]
  - Fatigue [Unknown]
  - Epistaxis [Unknown]
